FAERS Safety Report 10903964 (Version 2)
Quarter: 2015Q2

REPORT INFORMATION
  Report Type: Spontaneous
  Country: JP (occurrence: JP)
  Receive Date: 20150311
  Receipt Date: 20150406
  Transmission Date: 20150821
  Serious: Yes (Death, Other)
  Sender: FDA-Public Use
  Company Number: JP-ASTELLAS-2012JP005060

PATIENT
  Sex: Female

DRUGS (1)
  1. PROGRAF [Suspect]
     Active Substance: TACROLIMUS\TACROLIMUS ANHYDROUS
     Indication: MYASTHENIA GRAVIS
     Dosage: UNK UNK, UNKNOWN FREQ.
     Route: 048

REACTIONS (2)
  - Lung cancer metastatic [Fatal]
  - Pancreatic carcinoma [Fatal]

NARRATIVE: CASE EVENT DATE: 20120517
